FAERS Safety Report 12216230 (Version 2)
Quarter: 2016Q2

REPORT INFORMATION
  Report Type: Spontaneous
  Country: BR (occurrence: BR)
  Receive Date: 20160329
  Receipt Date: 20160526
  Transmission Date: 20160815
  Serious: Yes (Other)
  Sender: FDA-Public Use
  Company Number: BR-PFIZER INC-2016023002

PATIENT
  Age: 55 Year
  Sex: Male
  Weight: 107 kg

DRUGS (5)
  1. SUTENT [Suspect]
     Active Substance: SUNITINIB MALATE
     Dosage: 50 MG, CYCLE 2 PER 1
     Route: 048
     Dates: end: 201604
  2. LOSARTAN. [Concomitant]
     Active Substance: LOSARTAN
     Indication: HYPERTENSION
     Dosage: 1 TABLET (STRENGTH OF 50 MG) IN THE MORNING
     Dates: start: 2012
  3. HYDROCHLOROTHIAZIDE. [Concomitant]
     Active Substance: HYDROCHLOROTHIAZIDE
     Dosage: 1 TABLET 50 MG IN THE MORNING
     Dates: start: 2012
  4. DIPYRONE [Concomitant]
     Active Substance: DIPYRONE
     Indication: PAIN
     Dosage: 1 TABLET, ONLY WHEN HE FEELS PAIN
  5. SUTENT [Suspect]
     Active Substance: SUNITINIB MALATE
     Indication: METASTATIC RENAL CELL CARCINOMA
     Dosage: 50 MG,  ^1^ PER DAY AFTER THE LUNCH, CYCLIC, CYCLE 4 PER 2
     Route: 048
     Dates: start: 20151230, end: 201603

REACTIONS (14)
  - Nasal dryness [Recovering/Resolving]
  - Fatigue [Recovering/Resolving]
  - Aphthous ulcer [Recovering/Resolving]
  - Testicular mass [Unknown]
  - Erythema [Recovered/Resolved]
  - Yellow skin [Unknown]
  - Blood triglycerides abnormal [Unknown]
  - Blood cholesterol abnormal [Unknown]
  - Diabetes mellitus [Unknown]
  - Gastric disorder [Unknown]
  - Weight decreased [Unknown]
  - Gastritis bacterial [Unknown]
  - Burning sensation [Recovering/Resolving]
  - Dizziness [Not Recovered/Not Resolved]

NARRATIVE: CASE EVENT DATE: 20160102
